FAERS Safety Report 5451431-2 (Version None)
Quarter: 2007Q3

REPORT INFORMATION
  Report Type: 
  Country: None (occurrence: None)
  Receive Date: 20070911
  Receipt Date: 20070911
  Transmission Date: 20080115
  Serious: Yes (Other)
  Sender: FDA-Public Use
  Company Number: None

PATIENT
  Age: 19 Year
  Sex: Male
  Weight: 94.3482 kg

DRUGS (1)
  1. KEFLEX [Suspect]
     Indication: INGROWING NAIL
     Dosage: 500 MG BID PO
     Route: 048
     Dates: start: 20070910, end: 20070901

REACTIONS (6)
  - BALANCE DISORDER [None]
  - HEART RATE INCREASED [None]
  - HYPERHIDROSIS [None]
  - MUSCULAR WEAKNESS [None]
  - NAUSEA [None]
  - TREMOR [None]
